FAERS Safety Report 25888406 (Version 2)
Quarter: 2025Q4

REPORT INFORMATION
  Report Type: Report from Study
  Country: US (occurrence: US)
  Receive Date: 20251007
  Receipt Date: 20251113
  Transmission Date: 20260117
  Serious: Yes (Hospitalization)
  Sender: ABBVIE
  Company Number: US-ABBVIE-6490075

PATIENT
  Age: 77 Year
  Sex: Female
  Weight: 75 kg

DRUGS (5)
  1. SYNTHROID [Suspect]
     Active Substance: LEVOTHYROXINE SODIUM
     Indication: Thyroid disorder
     Dosage: FORM STRENGTH: 75 MICROGRAM
     Route: 048
     Dates: start: 2023
  2. OMEPRAZOLE [Concomitant]
     Active Substance: OMEPRAZOLE
     Indication: Gastrooesophageal reflux disease
     Dosage: 20 MILLIGRAM
  3. METOPROLOL [Concomitant]
     Active Substance: METOPROLOL
     Indication: Hypertension
  4. NITROFURANTOIN [Suspect]
     Active Substance: NITROFURANTOIN
     Indication: Urinary tract infection
     Route: 065
  5. AMITRIPTYLINE [Suspect]
     Active Substance: AMITRIPTYLINE
     Indication: Depression
     Dosage: 100 MILLIGRAM
     Route: 065

REACTIONS (10)
  - Fall [Recovered/Resolved]
  - Dizziness [Recovered/Resolved]
  - Freezing phenomenon [Recovered/Resolved]
  - Vein disorder [Recovering/Resolving]
  - Contusion [Recovering/Resolving]
  - Pain [Recovered/Resolved]
  - Balance disorder [Recovered/Resolved]
  - Urinary tract infection [Recovering/Resolving]
  - Drug hypersensitivity [Recovered/Resolved]
  - Depression [Unknown]

NARRATIVE: CASE EVENT DATE: 20250901
